FAERS Safety Report 5705099-8 (Version None)
Quarter: 2008Q2

REPORT INFORMATION
  Report Type: 
  Country: None (occurrence: None)
  Receive Date: 20080410
  Receipt Date: 20080328
  Transmission Date: 20081010
  Serious: Yes (Life-Threatening)
  Sender: FDA-Public Use
  Company Number: 025917

PATIENT
  Age: 33 Year
  Sex: Female

DRUGS (6)
  1. LITHIUM CARBONATE [Suspect]
     Indication: PSYCHOTIC DISORDER
  2. QUETIAPINE FUMARATE [Suspect]
     Indication: INSOMNIA
  3. QUETIAPINE FUMARATE [Suspect]
     Indication: PSYCHOTIC DISORDER
  4. RISPERDAL [Suspect]
     Indication: PSYCHOTIC DISORDER
  5. HALOPERIDOL [Suspect]
     Indication: PSYCHOTIC DISORDER
  6. BENZTROPINE MESYLATE [Concomitant]

REACTIONS (4)
  - CATATONIA [None]
  - MAJOR DEPRESSION [None]
  - NEUROLEPTIC MALIGNANT SYNDROME [None]
  - NO THERAPEUTIC RESPONSE [None]
